FAERS Safety Report 15779011 (Version 1)
Quarter: 2019Q1

REPORT INFORMATION
  Report Type: Report from Study
  Country: US (occurrence: US)
  Receive Date: 20190101
  Receipt Date: 20190101
  Transmission Date: 20190417
  Serious: Yes (Other)
  Sender: FDA-Public Use
  Company Number: US-AUROBINDO-AUR-APL-2018-063942

PATIENT
  Age: 12 Year
  Sex: Female

DRUGS (1)
  1. LIDOCAINE. [Suspect]
     Active Substance: LIDOCAINE
     Indication: MIGRAINE
     Dosage: UNK
     Route: 040

REACTIONS (2)
  - Cardiac arrest [Unknown]
  - Seizure [Unknown]
